FAERS Safety Report 4368806-5 (Version None)
Quarter: 2004Q2

REPORT INFORMATION
  Report Type: 
  Country: None (occurrence: None)
  Receive Date: 20040528
  Receipt Date: 20040517
  Transmission Date: 20050107
  Serious: Yes (Other)
  Sender: FDA-Public Use
  Company Number: 2004033529

PATIENT
  Sex: Male
  Weight: 82.1011 kg

DRUGS (3)
  1. ZOLOFT [Suspect]
     Indication: DEPRESSION
     Dosage: 1I N 1 D, ORAL
     Route: 048
     Dates: start: 20040323
  2. LORAZEPAM [Concomitant]
  3. METOPROLOL SUCCINATE [Concomitant]

REACTIONS (2)
  - AMNESIA [None]
  - PHYSICAL ASSAULT [None]
